FAERS Safety Report 4296703-2 (Version None)
Quarter: 2004Q1

REPORT INFORMATION
  Report Type: 
  Country: None (occurrence: None)
  Receive Date: 20040217
  Receipt Date: 20030130
  Transmission Date: 20041129
  Serious: Yes (Hospitalization)
  Sender: FDA-Public Use
  Company Number: WAES 0301USA03195

PATIENT
  Age: 52 Year
  Sex: Female
  Weight: 80 kg

DRUGS (11)
  1. FIORICET TABLETS [Concomitant]
     Indication: MIGRAINE
     Dates: start: 20010501
  2. FIORICET TABLETS [Concomitant]
     Indication: HEADACHE
     Dates: start: 20010501
  3. ASPIRIN [Concomitant]
     Indication: CEREBROVASCULAR ACCIDENT PROPHYLAXIS
  4. ASPIRIN [Concomitant]
     Indication: PROPHYLAXIS
  5. LIPITOR [Concomitant]
     Indication: BLOOD CHOLESTEROL INCREASED
     Dates: start: 20010601
  6. ZYRTEC [Concomitant]
     Indication: HYPERSENSITIVITY
  7. VIVELLE [Concomitant]
     Route: 061
  8. MOTRIN [Concomitant]
  9. PROMETRIUM [Concomitant]
     Dates: start: 20010101
  10. VIOXX [Suspect]
     Indication: PAIN IN EXTREMITY
     Route: 048
     Dates: start: 20010620, end: 20010911
  11. AMBIEN [Concomitant]
     Indication: INSOMNIA

REACTIONS (19)
  - ANXIETY DISORDER [None]
  - BLOOD CHOLESTEROL INCREASED [None]
  - BLOOD TRIGLYCERIDES INCREASED [None]
  - CHEST PAIN [None]
  - CYSTOCELE [None]
  - DEEP VEIN THROMBOSIS [None]
  - DEPRESSION [None]
  - DIZZINESS [None]
  - DYSPEPSIA [None]
  - DYSPNOEA [None]
  - GENERALISED ANXIETY DISORDER [None]
  - HOT FLUSH [None]
  - INJURY [None]
  - METRORRHAGIA [None]
  - MYOCARDIAL INFARCTION [None]
  - NAUSEA [None]
  - RECTOCELE [None]
  - STRESS INCONTINENCE [None]
  - URINARY INCONTINENCE [None]
